FAERS Safety Report 17223759 (Version 1)
Quarter: 2020Q1

REPORT INFORMATION
  Report Type: Report from Study
  Country: JP (occurrence: JP)
  Receive Date: 20200102
  Receipt Date: 20200102
  Transmission Date: 20200409
  Serious: Yes (Other)
  Sender: FDA-Public Use
  Company Number: JP-BEH-2019111180

PATIENT
  Age: 15 Year
  Sex: Male
  Weight: 61.9 kg

DRUGS (15)
  1. IDELVION [Suspect]
     Active Substance: COAGULATION FACTOR IX RECOMBINANT HUMAN
     Indication: FACTOR IX DEFICIENCY
     Dosage: 2000 INTERNATIONAL UNIT, QW
     Route: 042
     Dates: start: 20171118, end: 20180513
  2. RAPIACTA [Concomitant]
     Active Substance: PERAMIVIR
     Dosage: UNK
     Route: 065
     Dates: start: 20180228, end: 20180228
  3. MYSTAN [Concomitant]
     Active Substance: CLOBAZAM
     Route: 048
  4. DEPAKENE [VALPROATE SODIUM] [Concomitant]
     Active Substance: VALPROATE SODIUM
     Route: 048
  5. NOVACT M FUJISAWA [Concomitant]
     Dosage: UNK
     Route: 065
     Dates: start: 20180328, end: 20180328
  6. L-CARBOCYSTEINE [Concomitant]
     Active Substance: CARBOCYSTEINE
     Route: 048
  7. SODIUM PICOSULFATE [Concomitant]
     Active Substance: SODIUM PICOSULFATE
     Route: 048
  8. NOVACT M FUJISAWA [Concomitant]
     Dosage: UNK
     Route: 065
     Dates: start: 20180426, end: 20180426
  9. LIVOSTIN [Concomitant]
     Active Substance: LEVOCABASTINE HYDROCHLORIDE
     Route: 065
  10. FEXOFENADINE HYDROCHLORIDE. [Concomitant]
     Active Substance: FEXOFENADINE HYDROCHLORIDE
     Route: 048
  11. AMBROXOL HYDROCHLORIDE [Concomitant]
     Active Substance: AMBROXOL HYDROCHLORIDE
     Route: 048
  12. HAEMOLEX [Concomitant]
     Route: 065
  13. ROZEREM [Concomitant]
     Active Substance: RAMELTEON
     Route: 048
  14. IDELVION [Suspect]
     Active Substance: COAGULATION FACTOR IX RECOMBINANT HUMAN
     Indication: FACTOR IX DEFICIENCY
     Dosage: 2000 INTERNATIONAL UNIT, QW
     Route: 042
     Dates: start: 20171118, end: 20180513
  15. NOVACT M FUJISAWA [Concomitant]
     Indication: HAEMORRHAGE
     Dosage: UNK
     Route: 065
     Dates: start: 20180130, end: 20180130

REACTIONS (5)
  - Epistaxis [Recovered/Resolved]
  - Traumatic haemorrhage [Recovered/Resolved]
  - Haemarthrosis [Recovered/Resolved]
  - Influenza [Recovered/Resolved]
  - Contusion [Recovered/Resolved]

NARRATIVE: CASE EVENT DATE: 20180130
